FAERS Safety Report 16474539 (Version 1)
Quarter: 2019Q3

REPORT INFORMATION
  Report Type: Spontaneous
  Country: US (occurrence: US)
  Receive Date: 20190624
  Receipt Date: 20190624
  Transmission Date: 20191004
  Serious: Yes (Hospitalization)
  Sender: FDA-Public Use
  Company Number: None

PATIENT
  Age: 80 Year
  Sex: Male

DRUGS (4)
  1. REVLIMID [Concomitant]
     Active Substance: LENALIDOMIDE
  2. DEXAMETHASONE. [Suspect]
     Active Substance: DEXAMETHASONE
     Indication: PLASMA CELL MYELOMA
     Dosage: ?          OTHER FREQUENCY:ONCE WEEKLY;?
     Route: 048
     Dates: start: 20171108
  3. LISINOPRIL. [Concomitant]
     Active Substance: LISINOPRIL
  4. NINLARO [Concomitant]
     Active Substance: IXAZOMIB CITRATE

REACTIONS (4)
  - Pneumonia [None]
  - Infection [None]
  - Gait disturbance [None]
  - Joint swelling [None]

NARRATIVE: CASE EVENT DATE: 20190524
